FAERS Safety Report 5499221-9 (Version None)
Quarter: 2007Q4

REPORT INFORMATION
  Report Type: 
  Country: None (occurrence: None)
  Receive Date: 20071026
  Receipt Date: 20071019
  Transmission Date: 20080405
  Serious: Yes (Other)
  Sender: FDA-Public Use
  Company Number: US-GENENTECH-247295

PATIENT
  Sex: Male
  Weight: 35.374 kg

DRUGS (15)
  1. NUTROPIN AQ [Suspect]
     Indication: BODY HEIGHT BELOW NORMAL
     Dosage: 1.5 MG, QD
     Route: 058
     Dates: start: 20060825
  2. PREDNISONE [Concomitant]
     Indication: DRUG USE FOR UNKNOWN INDICATION
     Dosage: 25 MG, QD
     Route: 048
  3. CELLCEPT [Concomitant]
     Indication: DRUG USE FOR UNKNOWN INDICATION
     Dosage: 500 MG, QID
     Route: 048
  4. PROGRAF [Concomitant]
     Indication: DRUG USE FOR UNKNOWN INDICATION
     Dosage: 13 MG, QID
     Route: 048
  5. NORVASC [Concomitant]
     Indication: DRUG USE FOR UNKNOWN INDICATION
     Dosage: 7.5 MG, BID
     Route: 048
  6. NYSTATIN [Concomitant]
     Indication: DRUG USE FOR UNKNOWN INDICATION
     Dosage: 2.5 ML, QID
     Route: 048
  7. PEPCID AC [Concomitant]
     Indication: DRUG USE FOR UNKNOWN INDICATION
     Dosage: 20 MG/5ML, QD
  8. SEPTRA [Concomitant]
     Indication: DRUG USE FOR UNKNOWN INDICATION
     Dosage: 1 UNK, QID
     Route: 048
  9. VALCYTE [Concomitant]
     Indication: DRUG USE FOR UNKNOWN INDICATION
     Dosage: 450 MG, QID
  10. PHOSLO [Concomitant]
     Indication: DRUG USE FOR UNKNOWN INDICATION
     Dosage: 667 MG, TID
  11. NAHCO3 [Concomitant]
     Indication: DRUG USE FOR UNKNOWN INDICATION
     Dosage: 650 MG, BID
  12. VASOTEC [Concomitant]
     Indication: DRUG USE FOR UNKNOWN INDICATION
     Dosage: 5 MG, BID
  13. EPOGEN [Concomitant]
     Indication: DRUG USE FOR UNKNOWN INDICATION
     Dosage: 24000 UNIT, 2/WEEK
  14. ZEMPLAR [Concomitant]
     Indication: DRUG USE FOR UNKNOWN INDICATION
     Dosage: 1 A?G, QD
  15. RENAGEL [Concomitant]
     Indication: DRUG USE FOR UNKNOWN INDICATION
     Dosage: 800 MG, TID

REACTIONS (1)
  - NEPHROTIC SYNDROME [None]
